FAERS Safety Report 18202580 (Version 1)
Quarter: 2020Q3

REPORT INFORMATION
  Report Type: Spontaneous
  Country: FR (occurrence: FR)
  Receive Date: 20200827
  Receipt Date: 20200827
  Transmission Date: 20201103
  Serious: Yes (Other)
  Sender: FDA-Public Use
  Company Number: FR-ROCHE-2666331

PATIENT
  Age: 36 Year
  Sex: Female

DRUGS (1)
  1. DIAZEPAM. [Suspect]
     Active Substance: DIAZEPAM
     Indication: PRODUCT USED FOR UNKNOWN INDICATION
     Route: 048
     Dates: start: 20190727, end: 20190727

REACTIONS (2)
  - Amnesia [Recovered/Resolved with Sequelae]
  - Victim of chemical submission [Recovered/Resolved with Sequelae]

NARRATIVE: CASE EVENT DATE: 20190727
